FAERS Safety Report 18235535 (Version 1)
Quarter: 2020Q3

REPORT INFORMATION
  Report Type: Spontaneous
  Country: CA (occurrence: CA)
  Receive Date: 20200905
  Receipt Date: 20200905
  Transmission Date: 20201103
  Serious: Yes (Hospitalization)
  Sender: FDA-Public Use
  Company Number: CA-TEVA-2020-CA-1823043

PATIENT
  Age: 48 Year
  Sex: Female
  Weight: 56 kg

DRUGS (10)
  1. OXALIPLATIN INJECTION SINGLE USE VIALS [Suspect]
     Active Substance: OXALIPLATIN
     Indication: COLON CANCER
     Route: 042
  2. VALTREX [Concomitant]
     Active Substance: VALACYCLOVIR HYDROCHLORIDE
  3. PANTOLOC [Concomitant]
     Active Substance: PANTOPRAZOLE SODIUM
  4. MOXIFLOXACIN. [Concomitant]
     Active Substance: MOXIFLOXACIN
  5. TEVA?CYPROTERONE /ETHINYL ESTRADIOL [Concomitant]
  6. FLUOROURACIL INJECTION USP [Suspect]
     Active Substance: FLUOROURACIL
     Indication: COLON CANCER
     Route: 042
  7. AVASTIN [Concomitant]
     Active Substance: BEVACIZUMAB
  8. STEMETIL [Concomitant]
     Active Substance: PROCHLORPERAZINE
  9. BI?PEGLYTE [Concomitant]
  10. CLOTRIMADERM CREAM 1% [Concomitant]

REACTIONS (12)
  - Food aversion [Unknown]
  - Hypoaesthesia [Unknown]
  - Nausea [Unknown]
  - Dysgeusia [Unknown]
  - Palmar-plantar erythrodysaesthesia syndrome [Unknown]
  - Toxic skin eruption [Unknown]
  - Blister [Unknown]
  - Hypophagia [Unknown]
  - Epigastric discomfort [Unknown]
  - Vomiting [Unknown]
  - Diarrhoea [Unknown]
  - Skin exfoliation [Unknown]
